FAERS Safety Report 5148306-5 (Version None)
Quarter: 2006Q4

REPORT INFORMATION
  Report Type: 
  Country: None (occurrence: None)
  Receive Date: 20061106
  Receipt Date: 20061027
  Transmission Date: 20070319
  Serious: Yes (Other)
  Sender: FDA-Public Use
  Company Number: 2006132777

PATIENT
  Age: 44 Year
  Sex: Male
  Weight: 108 kg

DRUGS (1)
  1. SERTRALINE [Suspect]
     Indication: ANXIETY
     Dosage: ORAL
     Route: 048
     Dates: start: 20060710, end: 20060719

REACTIONS (4)
  - ERYTHEMA MULTIFORME [None]
  - LIP SWELLING [None]
  - OEDEMA PERIPHERAL [None]
  - SWOLLEN TONGUE [None]
